FAERS Safety Report 11423376 (Version 1)
Quarter: 2015Q3

REPORT INFORMATION
  Report Type: Spontaneous
  Country: US (occurrence: US)
  Receive Date: 20150827
  Receipt Date: 20150827
  Transmission Date: 20151125
  Serious: No
  Sender: FDA-Public Use
  Company Number: US-MYLANLABS-2015M1026384

PATIENT
  Sex: Male

DRUGS (2)
  1. CLONIDINE. [Suspect]
     Active Substance: CLONIDINE
     Indication: BLOOD PRESSURE INCREASED
     Dosage: 0.2 MG, QD, CHANGE QW
     Route: 062
  2. CLONIDINE. [Suspect]
     Active Substance: CLONIDINE
     Indication: BLOOD CHOLESTEROL INCREASED

REACTIONS (2)
  - Application site pruritus [Recovered/Resolved]
  - Wrong technique in product usage process [Recovered/Resolved]
